FAERS Safety Report 7671839-4 (Version None)
Quarter: 2011Q3

REPORT INFORMATION
  Report Type: 
  Country: None (occurrence: None)
  Receive Date: 20110809
  Receipt Date: 20110801
  Transmission Date: 20111222
  Serious: Yes (Death, Hospitalization)
  Sender: FDA-Public Use
  Company Number: DK-PFIZER INC-2011138569

PATIENT
  Age: 73 Year
  Sex: Female

DRUGS (9)
  1. METOPROLOL SUCCINATE [Concomitant]
     Indication: HEART RATE
     Dosage: 50 MG, 1X/DAY
     Dates: start: 20110511
  2. LOSARTAN [Concomitant]
     Indication: BLOOD PRESSURE
     Dosage: UNK
     Dates: start: 20101230
  3. PRAVASTATIN [Concomitant]
     Dosage: 40 MG, 1X/DAY
  4. CALCIUM [Concomitant]
     Dosage: 1 TABLET DAILY
  5. POTASSIUM [Concomitant]
     Dosage: 750 MG, 3X/DAY
  6. FUROSEMIDE [Concomitant]
     Indication: DIURETIC THERAPY
     Dosage: 40 MG, 3X/DAY
     Dates: start: 19950718
  7. ACETAMINOPHEN [Concomitant]
     Indication: PAIN
     Dosage: 1 G, 4X/DAY
     Dates: start: 19940518
  8. CELECOXIB [Suspect]
     Indication: OSTEOARTHRITIS
     Dosage: 200 MG, 2X/DAY
     Route: 048
     Dates: start: 20090401
  9. PIVMECILLINAM [Concomitant]
     Dosage: 200 MG, 3X/DAY

REACTIONS (2)
  - ATRIAL FIBRILLATION [None]
  - CEREBROVASCULAR ACCIDENT [None]
